FAERS Safety Report 7577319-9 (Version None)
Quarter: 2011Q2

REPORT INFORMATION
  Report Type: 
  Country: None (occurrence: None)
  Receive Date: 20110628
  Receipt Date: 20110127
  Transmission Date: 20111010
  Serious: Yes (Other)
  Sender: FDA-Public Use
  Company Number: US-BAYER-201037977NA

PATIENT
  Age: 21 Year
  Sex: Female
  Weight: 78.458 kg

DRUGS (5)
  1. NEXIUM [Concomitant]
     Dosage: 40 MG, QD
     Route: 048
  2. SEASONALE [Concomitant]
  3. HYDROCODONE [Concomitant]
  4. YASMIN [Suspect]
     Indication: CONTRACEPTION
     Dosage: UNK UNK, QD
     Route: 048
     Dates: start: 20060601, end: 20071001
  5. PRILOSEC [Concomitant]

REACTIONS (4)
  - GALLBLADDER INJURY [None]
  - BILIARY DYSKINESIA [None]
  - ABDOMINAL PAIN [None]
  - CHOLECYSTITIS CHRONIC [None]
